FAERS Safety Report 15490838 (Version 1)
Quarter: 2018Q4

REPORT INFORMATION
  Report Type: Report from Study
  Country: US (occurrence: US)
  Receive Date: 20181011
  Receipt Date: 20181011
  Transmission Date: 20190205
  Serious: Yes (Hospitalization)
  Sender: FDA-Public Use
  Company Number: US-BAXTER-2018BAX025084

PATIENT
  Age: 17 Year
  Sex: Female
  Weight: 48 kg

DRUGS (22)
  1. CRIZOTINIB [Suspect]
     Active Substance: CRIZOTINIB
     Dosage: ON DAYS 1-21 OF CYCLES 2, 4 AND 6 (CYCLE= 21 DAYS)
     Route: 048
  2. CYTARABINE. [Suspect]
     Active Substance: CYTARABINE
     Dosage: OVER 1-30 MINUTES (Q12 HOURS) ON DAYS 4 AND 5 (TOTAL 4 DOSES) OF CYCLES 1, 3 AND 5 (CYCLE= 21 DAYS)
     Route: 042
  3. DEXAMETHASONE. [Suspect]
     Active Substance: DEXAMETHASONE
     Dosage: LAST ADMINISTERED DOSE
     Route: 048
     Dates: start: 20180508, end: 20180508
  4. CYCLOPHOSPHAMIDE FOR INJECTION, USP [Suspect]
     Active Substance: CYCLOPHOSPHAMIDE
     Dosage: OVER 15-30 MINUTES ON DAYS 1-5 OF CYCLES 2, 4 AND 6 (CYCLE= 21 DAYS)
     Route: 042
  5. CRIZOTINIB [Suspect]
     Active Substance: CRIZOTINIB
     Indication: ANAPLASTIC LARGE CELL LYMPHOMA T- AND NULL-CELL TYPES
     Dosage: ON DAYS 1-21 OF CYCLE 1, 3 AND 5 (CYCLE = 21 DAYS)
     Route: 048
     Dates: start: 20180425
  6. DEXAMETHASONE. [Suspect]
     Active Substance: DEXAMETHASONE
     Dosage: ON DAYS 1-5 OF CYCLES 1, 3 AND 5 (CYCLE=21 DAYS)
     Route: 048
  7. DEXAMETHASONE. [Suspect]
     Active Substance: DEXAMETHASONE
     Indication: ANAPLASTIC LARGE CELL LYMPHOMA T- AND NULL-CELL TYPES
     Dosage: PROPHASE (CYCLE = 5 DAYS), ONCE DAILY ON DAYS 1-2
     Route: 048
     Dates: start: 20180407
  8. DEXAMETHASONE. [Suspect]
     Active Substance: DEXAMETHASONE
     Dosage: ON DAYS 1-5 OF CYCLES OF 2, 4 AND 6 (CYCLE= 21 DAYS)
     Route: 048
  9. VP-16 [Suspect]
     Active Substance: ETOPOSIDE
     Indication: ANAPLASTIC LARGE CELL LYMPHOMA T- AND NULL-CELL TYPES
     Dosage: OVER 2 HOURS ON DAYS 4 AND 5 OF CYCLES 1, 3 AND 5 (CYCLE= 21 DAYS)
     Route: 042
     Dates: start: 20180412
  10. IFOSFAMIDE FOR INJECTION [Suspect]
     Active Substance: IFOSFAMIDE
     Indication: ANAPLASTIC LARGE CELL LYMPHOMA T- AND NULL-CELL TYPES
     Dosage: OVER 60 MIN ON DAYS 1-5 OF CYCLES 1, 3 AND 5 (CYCLE= 21 DAYS)
     Route: 042
     Dates: start: 20180412
  11. CRIZOTINIB [Suspect]
     Active Substance: CRIZOTINIB
     Dosage: LAST ADMINISTERED DOSE
     Route: 048
     Dates: start: 20180509, end: 20180509
  12. METHOTREXATE SODIUM. [Suspect]
     Active Substance: METHOTREXATE SODIUM
     Indication: ANAPLASTIC LARGE CELL LYMPHOMA T- AND NULL-CELL TYPES
     Dosage: PROPHASE (CYCLE = 5 DAYS), 7.5-12 MG, ON DAY 1 (AGE BASED DOSING)
     Route: 037
     Dates: start: 20180407
  13. METHOTREXATE SODIUM. [Suspect]
     Active Substance: METHOTREXATE SODIUM
     Dosage: OVER 3 HOURS ON DAY 1 OF CYCLES 1, 3 AND 5 (CYCLE - 21 DAYS)
     Route: 042
  14. CYCLOPHOSPHAMIDE FOR INJECTION, USP [Suspect]
     Active Substance: CYCLOPHOSPHAMIDE
     Indication: ANAPLASTIC LARGE CELL LYMPHOMA T- AND NULL-CELL TYPES
     Dosage: PROPHASE (CYCLE = 5 DAYS), OVER 15-30 MINUTES ON DAYS 1 AND 2
     Route: 042
     Dates: start: 20180407
  15. CYTARABINE. [Suspect]
     Active Substance: CYTARABINE
     Indication: ANAPLASTIC LARGE CELL LYMPHOMA T- AND NULL-CELL TYPES
     Dosage: PROPHASE (CYCLE = 5 DAYS), 15-24 MG, ON DAY 1 (AGE BASED DOSING)
     Route: 037
     Dates: start: 20180407
  16. CYCLOPHOSPHAMIDE FOR INJECTION, USP [Suspect]
     Active Substance: CYCLOPHOSPHAMIDE
     Dosage: LAST ADMINISTRATION DOSE
     Route: 042
     Dates: start: 20180508, end: 20180508
  17. METHOTREXATE SODIUM. [Suspect]
     Active Substance: METHOTREXATE SODIUM
     Dosage: LAST DOSE ADMINISTERED
     Route: 042
     Dates: start: 20180504, end: 20180504
  18. DOXORUBICIN HYDROCHLORIDE. [Suspect]
     Active Substance: DOXORUBICIN HYDROCHLORIDE
     Indication: ANAPLASTIC LARGE CELL LYMPHOMA T- AND NULL-CELL TYPES
     Dosage: OVER 1-15 MIN ON DAYS 4 AND 5 OF CYCLES 2, 4 AND 6 (CYCLE= 21 DAYS)
     Route: 042
  19. HYDROCORTISONE. [Suspect]
     Active Substance: HYDROCORTISONE
     Indication: ANAPLASTIC LARGE CELL LYMPHOMA T- AND NULL-CELL TYPES
     Dosage: TABLET, PROPHASE (CYCLE = 5 DAYS), 7.5-12 MG, ON DAY 1 (AGE BASED DOSING)
     Route: 037
     Dates: start: 20180407
  20. DEXAMETHASONE. [Suspect]
     Active Substance: DEXAMETHASONE
     Dosage: PROPHASE (CYCLE = 5 DAYS), TWICE DAILY ON DAYS 3-5
     Route: 048
     Dates: start: 20180407
  21. METHOTREXATE SODIUM. [Suspect]
     Active Substance: METHOTREXATE SODIUM
     Dosage: OVER 3 HOURS ON DAY 1 OF CYCLES 2, 4 AND 6 (CYCLE - 21 DAYS)
     Route: 042
  22. DOXORUBICIN HYDROCHLORIDE. [Suspect]
     Active Substance: DOXORUBICIN HYDROCHLORIDE
     Dosage: LAST DOSE ADMINISTERED
     Route: 042
     Dates: start: 20180508, end: 20180508

REACTIONS (3)
  - Syncope [Unknown]
  - Stomatitis [Unknown]
  - Nausea [Unknown]

NARRATIVE: CASE EVENT DATE: 20180509
